FAERS Safety Report 6174995-2 (Version None)
Quarter: 2009Q2

REPORT INFORMATION
  Report Type: 
  Country: None (occurrence: None)
  Receive Date: 20090430
  Receipt Date: 20081110
  Transmission Date: 20091009
  Serious: No
  Sender: FDA-Public Use
  Company Number: US-ASTRAZENECA-2008UW25155

PATIENT
  Age: 60 Year
  Sex: Female
  Weight: 86.2 kg

DRUGS (5)
  1. NEXIUM [Suspect]
     Indication: DYSPHONIA
     Route: 048
     Dates: start: 20080501
  2. NEXIUM [Suspect]
     Indication: COUGH
     Route: 048
     Dates: start: 20080501
  3. NEXIUM [Suspect]
     Indication: GASTROOESOPHAGEAL REFLUX DISEASE
     Route: 048
     Dates: start: 20080501
  4. LIPITOR [Concomitant]
     Dosage: 1/2 TABLET DAILY
  5. BLOOD PRESSURE MEDICINE [Concomitant]

REACTIONS (4)
  - BREATH ODOUR [None]
  - DYSGEUSIA [None]
  - GASTROOESOPHAGEAL REFLUX DISEASE [None]
  - NAUSEA [None]
